FAERS Safety Report 5913376-0 (Version None)
Quarter: 2008Q4

REPORT INFORMATION
  Report Type: 
  Country: None (occurrence: None)
  Receive Date: 20081009
  Receipt Date: 20081002
  Transmission Date: 20090506
  Serious: Yes (Death, Hospitalization)
  Sender: FDA-Public Use
  Company Number: PHHY2008FR22678

PATIENT

DRUGS (6)
  1. ACLASTA [Suspect]
     Indication: OSTEITIS DEFORMANS
  2. AMLOD [Concomitant]
  3. DIGOXIN [Concomitant]
  4. DIFFU K [Concomitant]
  5. DAFALGAN [Concomitant]
  6. LASIX [Concomitant]

REACTIONS (4)
  - ACUTE PULMONARY OEDEMA [None]
  - CARDIAC FAILURE [None]
  - DYSPNOEA [None]
  - FLUID OVERLOAD [None]
